FAERS Safety Report 8452742-9 (Version None)
Quarter: 2012Q2

REPORT INFORMATION
  Report Type: 
  Country: None (occurrence: None)
  Receive Date: 20120620
  Receipt Date: 20120508
  Transmission Date: 20120825
  Serious: No
  Sender: FDA-Public Use
  Company Number: US-VERTEX PHARMACEUTICALS INC.-AE-2012-005893

PATIENT
  Sex: Female
  Weight: 63.56 kg

DRUGS (15)
  1. INCIVEK [Suspect]
     Indication: HEPATITIS C
     Route: 048
     Dates: start: 20120221
  2. LOPRESSOR [Concomitant]
  3. NEORAL [Concomitant]
     Route: 048
  4. ZOFRAN [Concomitant]
     Indication: NAUSEA
     Route: 048
  5. LASIX [Concomitant]
  6. PHENERGAN [Concomitant]
     Indication: NAUSEA
     Route: 048
  7. ZOLOFT [Concomitant]
  8. ACIPHEX [Concomitant]
     Route: 048
  9. BENADRYL [Concomitant]
     Route: 048
  10. NORVASC [Concomitant]
  11. RIBAVIRIN [Concomitant]
     Indication: HEPATITIS C
     Route: 048
     Dates: start: 20120221
  12. PEGASYS [Concomitant]
     Route: 058
     Dates: start: 20120410
  13. RIBAVIRIN [Concomitant]
  14. PEGASYS [Concomitant]
     Indication: HEPATITIS C
     Route: 058
     Dates: start: 20120221, end: 20120403
  15. ATIVAN [Concomitant]
     Route: 048

REACTIONS (4)
  - DEHYDRATION [None]
  - ANAEMIA [None]
  - DIARRHOEA [None]
  - OFF LABEL USE [None]
